FAERS Safety Report 25461111 (Version 2)
Quarter: 2025Q2

REPORT INFORMATION
  Report Type: Spontaneous
  Country: IT (occurrence: IT)
  Receive Date: 20250620
  Receipt Date: 20250630
  Transmission Date: 20250716
  Serious: Yes (Death, Hospitalization, Other)
  Sender: PFIZER
  Company Number: IT-PFIZER INC-202500123321

PATIENT
  Age: 78 Year
  Sex: Female
  Weight: 95 kg

DRUGS (17)
  1. XELJANZ [Suspect]
     Active Substance: TOFACITINIB CITRATE
     Indication: Rheumatoid arthritis
     Dosage: 5 MG, 2X/DAY
     Route: 048
     Dates: start: 20190922, end: 20250202
  2. MEDROL [Concomitant]
     Active Substance: METHYLPREDNISOLONE
     Dosage: 4 MG, 1X/DAY
     Dates: start: 20180402, end: 20250205
  3. OMEPRAZEN [OMEPRAZOLE SODIUM] [Concomitant]
     Dosage: 40 MG, 1X/DAY
     Route: 048
  4. LAMPARD [Concomitant]
     Dosage: 5 DROP, 1X/DAY
  5. CITALOPRAM HYDROBROMIDE [Concomitant]
     Active Substance: CITALOPRAM HYDROBROMIDE
     Dosage: 10 DROP, 1X/DAY
     Route: 048
  6. FOLIC ACID [Concomitant]
     Active Substance: FOLIC ACID
     Dosage: 5 MG, 1X/DAY
     Route: 048
  7. REMERON [Concomitant]
     Active Substance: MIRTAZAPINE
     Dosage: 15 MG, 1X/DAY
     Route: 048
  8. XANAX [Concomitant]
     Active Substance: ALPRAZOLAM
     Dosage: 18 DROP, 1X/DAY
     Route: 048
  9. ATORVASTATIN [Concomitant]
     Active Substance: ATORVASTATIN
     Dosage: 40 MG, 1X/DAY
     Route: 048
  10. BISOPROLOL FUMARATE [Concomitant]
     Active Substance: BISOPROLOL FUMARATE
     Dosage: 3.75 MG, 1X/DAY
     Route: 048
  11. ALLOPURINOL [Concomitant]
     Active Substance: ALLOPURINOL
     Dosage: 150 MG, 1X/DAY
     Route: 048
  12. ASPIRIN\CLOPIDOGREL [Concomitant]
     Active Substance: ASPIRIN\CLOPIDOGREL
     Dosage: 75 MG, 1X/DAY
     Route: 048
  13. IRBESARTAN [Concomitant]
     Active Substance: IRBESARTAN
     Dosage: 300 MG, 1X/DAY
     Route: 048
  14. FOSAVANCE [Concomitant]
     Active Substance: ALENDRONATE SODIUM\CHOLECALCIFEROL
     Dosage: 75 MG, WEEKLY
     Route: 048
  15. EZETIMIBE [Concomitant]
     Active Substance: EZETIMIBE
     Dosage: 10 MG, 1X/DAY
     Route: 048
  16. HUMALOG [Concomitant]
     Active Substance: INSULIN LISPRO
     Dosage: 10/16/12 MG, 3X/DAY
     Route: 058
  17. TRESIBA [Concomitant]
     Active Substance: INSULIN DEGLUDEC
     Dosage: 12 MG, 1X/DAY
     Route: 058

REACTIONS (6)
  - Interstitial lung disease [Fatal]
  - Emphysema [Fatal]
  - Myocardial ischaemia [Fatal]
  - Gastrointestinal disorder [Fatal]
  - Herpes zoster [Fatal]
  - Cardiac arrest [Fatal]

NARRATIVE: CASE EVENT DATE: 20250205
